FAERS Safety Report 25118819 (Version 2)
Quarter: 2025Q2

REPORT INFORMATION
  Report Type: Spontaneous
  Country: US (occurrence: US)
  Receive Date: 20250325
  Receipt Date: 20250516
  Transmission Date: 20250717
  Serious: Yes (Death)
  Sender: NAPO PHARMACEUTICALS
  Company Number: US-NAPO PHARMACEUTICALS-2025US001206

PATIENT

DRUGS (3)
  1. MYTESI [Suspect]
     Active Substance: CROFELEMER
     Indication: Gastrointestinal inflammation
     Dosage: 1 DOSAGE FORM, BID
     Route: 048
     Dates: start: 20250212
  2. MYTESI [Suspect]
     Active Substance: CROFELEMER
     Indication: Colitis
  3. MYTESI [Suspect]
     Active Substance: CROFELEMER
     Indication: Diarrhoea

REACTIONS (1)
  - Death [Fatal]

NARRATIVE: CASE EVENT DATE: 20250225
